FAERS Safety Report 8952540 (Version 3)
Quarter: 2013Q2

REPORT INFORMATION
  Report Type: Report from Study
  Country: AU (occurrence: AU)
  Receive Date: 20121205
  Receipt Date: 20130424
  Transmission Date: 20140414
  Serious: Yes (Hospitalization)
  Sender: FDA-Public Use
  Company Number: AU-SANOFI-AVENTIS-2012SA087337

PATIENT
  Age: 54 Year
  Sex: Female
  Weight: 73.5 kg

DRUGS (9)
  1. OXALIPLATIN [Suspect]
     Indication: COLORECTAL CANCER METASTATIC
     Dosage: FREQUENCY- 2/52?LAST DOSE PRIOR TO SAE: 20 NOV 2012
     Route: 042
     Dates: start: 20121002, end: 20130102
  2. BEVACIZUMAB [Suspect]
     Indication: COLORECTAL CANCER METASTATIC
     Dosage: FREQUENCY- 2/52?LAST DOSE PRIOR TO SAE: 20 NOV 2012
     Route: 042
     Dates: start: 20121002
  3. FLUOROURACIL [Suspect]
     Indication: COLORECTAL CANCER METASTATIC
     Dosage: FREQUENCY- 2/52?FORM: INFUSION,?LAST DOSE PRIOR TO SAE: 30 OCT 2012
     Route: 042
     Dates: start: 20121002
  4. FLUOROURACIL [Suspect]
     Indication: COLORECTAL CANCER METASTATIC
     Dosage: FREQUENCY- 2/52
     Route: 040
  5. PAROXETINE [Concomitant]
     Dates: start: 20120722
  6. TEMAZEPAM [Concomitant]
     Dates: start: 20121024
  7. ESOMEPRAZOLE MAGNESIUM [Concomitant]
     Dates: start: 2002
  8. OLMETEC [Concomitant]
     Dates: start: 20121011
  9. OLMETEC [Concomitant]
     Dates: start: 20121012

REACTIONS (2)
  - Angina pectoris [Recovered/Resolved]
  - Pulmonary embolism [Recovered/Resolved with Sequelae]
